FAERS Safety Report 15156429 (Version 12)
Quarter: 2019Q4

REPORT INFORMATION
  Report Type: Spontaneous
  Country: US (occurrence: US)
  Receive Date: 20180717
  Receipt Date: 20191218
  Transmission Date: 20200122
  Serious: Yes (Death, Hospitalization)
  Sender: FDA-Public Use
  Company Number: US-ACTELION-A-US2018-175313

PATIENT
  Age: 68 Year
  Sex: Female
  Weight: 66.21 kg

DRUGS (3)
  1. ADEMPAS [Concomitant]
     Active Substance: RIOCIGUAT
  2. FLOLAN [Concomitant]
     Active Substance: EPOPROSTENOL SODIUM
  3. OPSUMIT [Suspect]
     Active Substance: MACITENTAN
     Indication: PULMONARY ARTERIAL HYPERTENSION
     Dosage: 10 MG, QD
     Route: 048
     Dates: start: 20171219

REACTIONS (12)
  - Pulmonary arterial hypertension [Fatal]
  - Oedema peripheral [Unknown]
  - Malaise [Unknown]
  - Abdominal cavity drainage [Unknown]
  - Wound secretion [Unknown]
  - Right ventricular failure [Not Recovered/Not Resolved]
  - Dyspnoea [Unknown]
  - Palliative care [Not Recovered/Not Resolved]
  - Ascites [Unknown]
  - Catheter site discharge [Unknown]
  - Vomiting [Unknown]
  - Fluid overload [Not Recovered/Not Resolved]

NARRATIVE: CASE EVENT DATE: 20190816
